FAERS Safety Report 24118137 (Version 2)
Quarter: 2024Q3

REPORT INFORMATION
  Report Type: Spontaneous
  Country: US (occurrence: US)
  Receive Date: 20240722
  Receipt Date: 20240826
  Transmission Date: 20241016
  Serious: Yes (Death)
  Sender: AMGEN
  Company Number: US-AMGEN-USASP2024141745

PATIENT
  Sex: Male

DRUGS (1)
  1. REPATHA [Suspect]
     Active Substance: EVOLOCUMAB
     Indication: Product used for unknown indication
     Dosage: UNK, QMO
     Route: 065
     Dates: start: 2018

REACTIONS (2)
  - Death [Fatal]
  - Therapy interrupted [Unknown]

NARRATIVE: CASE EVENT DATE: 20240601
